FAERS Safety Report 8533899-8 (Version None)
Quarter: 2012Q3

REPORT INFORMATION
  Report Type: 
  Country: None (occurrence: None)
  Receive Date: 20120724
  Receipt Date: 20120716
  Transmission Date: 20120928
  Serious: Yes (Hospitalization)
  Sender: FDA-Public Use
  Company Number: US-ROCHE-1088621

PATIENT
  Sex: Male
  Weight: 95.7 kg

DRUGS (1)
  1. AVASTIN [Suspect]
     Indication: GLIOBLASTOMA MULTIFORME
     Dosage: STRENGTH 25 MG/ML
     Route: 042
     Dates: start: 20110825, end: 20120712

REACTIONS (4)
  - HYPOAESTHESIA [None]
  - DIZZINESS [None]
  - MUSCULAR WEAKNESS [None]
  - PARAESTHESIA [None]
